FAERS Safety Report 9201304 (Version 2)
Quarter: 2013Q2

REPORT INFORMATION
  Report Type: Report from Study
  Country: FR (occurrence: FR)
  Receive Date: 20130401
  Receipt Date: 20130415
  Transmission Date: 20140414
  Serious: Yes (Death)
  Sender: FDA-Public Use
  Company Number: FR-GENZYME-CAMP-1002832

PATIENT
  Sex: Male

DRUGS (6)
  1. CAMPATH [Suspect]
     Indication: T-CELL PROLYMPHOCYTIC LEUKAEMIA
     Dosage: 3 MG, ONCE
     Route: 065
     Dates: start: 20121107, end: 20121107
  2. CAMPATH [Suspect]
     Dosage: 10 MG, ONCE
     Route: 065
     Dates: start: 20121108, end: 20121108
  3. CAMPATH [Suspect]
     Dosage: 30 MG, ONCE
     Route: 065
     Dates: start: 20121109, end: 20121109
  4. CYCLOPHOSPHAMIDE [Concomitant]
     Indication: T-CELL PROLYMPHOCYTIC LEUKAEMIA
     Dosage: UNK
     Route: 065
     Dates: start: 20121028
  5. VINCRISTINE [Concomitant]
     Indication: T-CELL PROLYMPHOCYTIC LEUKAEMIA
     Dosage: UNK
     Route: 065
     Dates: start: 20121028
  6. PREDNISOLONE [Concomitant]
     Indication: T-CELL PROLYMPHOCYTIC LEUKAEMIA
     Dosage: UNK
     Route: 065
     Dates: start: 20121028

REACTIONS (1)
  - Disease progression [Fatal]
